FAERS Safety Report 14014427 (Version 1)
Quarter: 2017Q3

REPORT INFORMATION
  Report Type: Report from Study
  Country: CA (occurrence: CA)
  Receive Date: 20170927
  Receipt Date: 20170927
  Transmission Date: 20171128
  Serious: Yes (Disabling)
  Sender: FDA-Public Use
  Company Number: CA-AMGEN-CANSL2017103069

PATIENT
  Age: 55 Year
  Sex: Male
  Weight: 119.5 kg

DRUGS (3)
  1. KYPROLIS [Suspect]
     Active Substance: CARFILZOMIB
     Dosage: 123 MG, DAY 1, 2, 8, 9, 15 AND 16
     Route: 042
     Dates: start: 2017, end: 2017
  2. KYPROLIS [Suspect]
     Active Substance: CARFILZOMIB
     Indication: PLASMA CELL MYELOMA
     Dosage: 123 MG, DAY 1, 2, 8, 9, 15 AND 16
     Route: 042
     Dates: start: 20170412, end: 2017
  3. KYPROLIS [Suspect]
     Active Substance: CARFILZOMIB
     Dosage: 123 MG, DAY 1, 2, 8, 9, 15 AND 16
     Route: 042
     Dates: start: 2017

REACTIONS (8)
  - Dyspnoea [Recovered/Resolved]
  - Nasopharyngitis [Not Recovered/Not Resolved]
  - Cough [Recovered/Resolved]
  - Productive cough [Recovered/Resolved]
  - Pain [Not Recovered/Not Resolved]
  - Fatigue [Not Recovered/Not Resolved]
  - Pain in extremity [Recovered/Resolved]
  - Rhinorrhoea [Not Recovered/Not Resolved]

NARRATIVE: CASE EVENT DATE: 2017
